FAERS Safety Report 21186893 (Version 1)
Quarter: 2022Q3

REPORT INFORMATION
  Report Type: Spontaneous
  Country: SE (occurrence: SE)
  Receive Date: 20220808
  Receipt Date: 20220808
  Transmission Date: 20221027
  Serious: Yes (Death, Other)
  Sender: FDA-Public Use
  Company Number: None

PATIENT
  Age: 90 Year
  Sex: Female

DRUGS (11)
  1. OLIMEL E [Suspect]
     Active Substance: AMINO ACIDS\DEXTROSE\ELECTROLYTES NOS\SOYBEAN OIL
     Indication: Malnutrition
     Dosage: 1000 ML (MILLITER), ONCE DAILY
     Route: 042
     Dates: start: 20220504, end: 20220505
  2. FERROUS SULFATE [Concomitant]
     Active Substance: FERROUS SULFATE
     Dosage: 100 MILLIGRAM (MG), ONCE DAY
     Route: 048
     Dates: start: 20201022
  3. METOPROLOL [Concomitant]
     Active Substance: METOPROLOL
     Dosage: 50 MILLIGRAM (MG), ONCE DAILY
     Route: 048
     Dates: start: 20220122
  4. ACETAMINOPHEN [Concomitant]
     Active Substance: ACETAMINOPHEN
     Dosage: 3000 MILLIGRAM (MG), ONCE DAILY
     Route: 048
     Dates: start: 20180329
  5. ESOMEPRAZOL KRKA [Concomitant]
     Dosage: 40 MILLIGRAM (MG), ONCE DAILY
     Route: 048
     Dates: start: 20200420
  6. FRAGMIN [Concomitant]
     Active Substance: DALTEPARIN SODIUM
     Dosage: 10000 [IU] (INTERNATIONAL UNIT), ONCE DAILY
     Route: 058
     Dates: start: 20220422
  7. SIMVASTATIN [Concomitant]
     Active Substance: SIMVASTATIN
     Dosage: 40 MILLIGRAM (MG), ONCE DAILY
     Route: 048
     Dates: start: 20200409
  8. VANCOCIN [Concomitant]
     Active Substance: VANCOMYCIN HYDROCHLORIDE
     Dosage: 500 MILLIGRAM (MG), ONCE DAILY
     Route: 048
     Dates: start: 20220502
  9. CHOLECALCIFEROL [Concomitant]
     Active Substance: CHOLECALCIFEROL
     Dosage: 800 [IU] (INTERNATIONAL UNIT), ONCE DAILY
     Route: 048
     Dates: start: 20220122
  10. Amlodipin sandoz [Concomitant]
     Dosage: 10 MILLIGRAM (MG), ONCE DAILY
     Route: 048
     Dates: start: 20220120
  11. RISPERIDONE [Concomitant]
     Active Substance: RISPERIDONE
     Dosage: 0.25 MILLIGRAM (MG), ONCE DAILY
     Route: 048
     Dates: start: 20220323

REACTIONS (3)
  - Multiple organ dysfunction syndrome [Fatal]
  - Condition aggravated [Fatal]
  - Incorrect drug administration rate [Fatal]

NARRATIVE: CASE EVENT DATE: 20220504
